FAERS Safety Report 8623295-7 (Version None)
Quarter: 2012Q3

REPORT INFORMATION
  Report Type: 
  Country: None (occurrence: None)
  Receive Date: 20120827
  Receipt Date: 20120816
  Transmission Date: 20120928
  Serious: No
  Sender: FDA-Public Use
  Company Number: DE-ELI_LILLY_AND_COMPANY-DE201208005191

PATIENT
  Sex: Male

DRUGS (1)
  1. DULOXETINE HYDROCHLORIDE [Suspect]
     Indication: STRESS URINARY INCONTINENCE
     Dosage: UNK
     Route: 048

REACTIONS (2)
  - HEPATIC ENZYME INCREASED [None]
  - OFF LABEL USE [None]
